FAERS Safety Report 7996038-8 (Version None)
Quarter: 2011Q4

REPORT INFORMATION
  Report Type: 
  Country: None (occurrence: None)
  Receive Date: 20111220
  Receipt Date: 20111208
  Transmission Date: 20120403
  Serious: Yes (Hospitalization)
  Sender: FDA-Public Use
  Company Number: PHHY2011SE107009

PATIENT
  Sex: Female

DRUGS (4)
  1. TEGRETOL [Suspect]
     Indication: TRIGEMINAL NEURALGIA
     Dosage: 100 MG, UNK
     Route: 048
  2. VAGIFEM [Concomitant]
     Dosage: UNK UKN, UNK
  3. INNOHEP [Concomitant]
     Dosage: UNK UKN, UNK
  4. GLUCOSAMINE [Concomitant]
     Dosage: UNK UKN, UNK

REACTIONS (5)
  - PORTAL VEIN THROMBOSIS [None]
  - PANCREATITIS CHRONIC [None]
  - PANCREATIC CALCIFICATION [None]
  - ABDOMINAL PAIN [None]
  - BACK PAIN [None]
